FAERS Safety Report 7569265-1 (Version None)
Quarter: 2011Q2

REPORT INFORMATION
  Report Type: 
  Country: None (occurrence: None)
  Receive Date: 20110623
  Receipt Date: 20110620
  Transmission Date: 20111010
  Serious: Yes (Death)
  Sender: FDA-Public Use
  Company Number: PHHY2008DE37526

PATIENT
  Sex: Male
  Weight: 69 kg

DRUGS (1)
  1. SANDOSTATIN LAR [Suspect]
     Indication: ACROMEGALY
     Dosage: 20 MG
     Route: 030
     Dates: start: 20081023

REACTIONS (3)
  - PNEUMONIA [None]
  - MOBILITY DECREASED [None]
  - BRONCHIAL CARCINOMA [None]
